FAERS Safety Report 9140219 (Version 1)
Quarter: 2013Q1

REPORT INFORMATION
  Report Type: Spontaneous
  Country: JP (occurrence: JP)
  Receive Date: 20130305
  Receipt Date: 20130305
  Transmission Date: 20140127
  Serious: Yes (Other)
  Sender: FDA-Public Use
  Company Number: JP-PFIZER INC-2013072283

PATIENT
  Age: 71 Year
  Sex: 0

DRUGS (3)
  1. ZYVOX [Suspect]
     Indication: STAPHYLOCOCCAL INFECTION
     Dosage: UNK
     Route: 065
     Dates: start: 20130221, end: 20130225
  2. VANCOMYCIN [Concomitant]
     Dosage: UNK
  3. LOXONIN [Concomitant]

REACTIONS (1)
  - Renal impairment [Unknown]
